FAERS Safety Report 5288077-5 (Version None)
Quarter: 2007Q2

REPORT INFORMATION
  Report Type: 
  Country: None (occurrence: None)
  Receive Date: 20070402
  Receipt Date: 20070402
  Transmission Date: 20071010
  Serious: Yes (Other)
  Sender: FDA-Public Use
  Company Number: None

PATIENT
  Sex: Female
  Weight: 63.5036 kg

DRUGS (1)
  1. REGLAN [Suspect]
     Indication: DYSPEPSIA
     Dosage: ONE }EA MEAL + }BED PO  3-5 YEARS
     Route: 048

REACTIONS (1)
  - TARDIVE DYSKINESIA [None]
